FAERS Safety Report 24451897 (Version 2)
Quarter: 2025Q1

REPORT INFORMATION
  Report Type: Spontaneous
  Country: US (occurrence: US)
  Receive Date: 20241017
  Receipt Date: 20250307
  Transmission Date: 20250408
  Serious: No
  Sender: GALDERMA
  Company Number: US-GALDERMA-US2024014842

PATIENT

DRUGS (8)
  1. PROACTIV MD ADAPALENE ACNE TREATMENT [Suspect]
     Active Substance: ADAPALENE
     Indication: Product used for unknown indication
     Route: 061
     Dates: start: 202408
  2. PROACTIV CLEAR SKIN SPF 30 [Concomitant]
     Active Substance: AVOBENZONE\OCTISALATE\OCTOCRYLENE
     Indication: Product used for unknown indication
     Route: 061
     Dates: start: 202408
  3. Proactiv MD Ultra Gentle Cleanser [Concomitant]
     Indication: Product used for unknown indication
     Route: 061
     Dates: start: 202408
  4. COSMETICS [Concomitant]
     Active Substance: COSMETICS
     Indication: Product used for unknown indication
     Route: 061
     Dates: start: 202408
  5. COSMETICS [Concomitant]
     Active Substance: COSMETICS
     Indication: Product used for unknown indication
     Route: 061
     Dates: start: 202408
  6. COSMETICS [Concomitant]
     Active Substance: COSMETICS
     Indication: Product used for unknown indication
     Route: 061
     Dates: start: 202408
  7. Proactiv Post Blemish 10% Vitamin C Serum [Concomitant]
     Indication: Product used for unknown indication
     Route: 061
     Dates: start: 202408
  8. Proactiv Zits Happen Patches [Concomitant]
     Indication: Product used for unknown indication
     Route: 061
     Dates: start: 202408

REACTIONS (3)
  - Skin irritation [Unknown]
  - Skin discomfort [Unknown]
  - Erythema [Unknown]

NARRATIVE: CASE EVENT DATE: 20240101
